FAERS Safety Report 6307302-2 (Version None)
Quarter: 2009Q3

REPORT INFORMATION
  Report Type: 
  Country: None (occurrence: None)
  Receive Date: 20090813
  Receipt Date: 20090807
  Transmission Date: 20100115
  Serious: Yes (Other)
  Sender: FDA-Public Use
  Company Number: NL-PFIZER INC-2009251861

PATIENT
  Age: 17 Year

DRUGS (1)
  1. DEPO-PROVERA [Suspect]
     Dosage: UNK
     Dates: start: 20090101

REACTIONS (2)
  - PERONEAL MUSCULAR ATROPHY [None]
  - WEIGHT DECREASED [None]
